FAERS Safety Report 7532632-6 (Version None)
Quarter: 2011Q2

REPORT INFORMATION
  Report Type: 
  Country: None (occurrence: None)
  Receive Date: 20110608
  Receipt Date: 20110604
  Transmission Date: 20111010
  Serious: Yes (Death, Hospitalization)
  Sender: FDA-Public Use
  Company Number: PHHY2011BR48933

PATIENT
  Sex: Female

DRUGS (6)
  1. CITALOPRAM HYDROBROMIDE [Concomitant]
     Dosage: UNK UKN, UNK
  2. EXELON [Suspect]
     Indication: DEMENTIA ALZHEIMER'S TYPE
     Dosage: 18MG/10CM2,  PATCH EVERY 24 HOURS
     Route: 062
     Dates: end: 20110301
  3. LOSARTAN POTASSIUM [Concomitant]
     Dosage: 50 MG, UNK
  4. METFORMIN HCL [Concomitant]
     Dosage: 850 MG, UNK
  5. SYNTHROID [Concomitant]
     Dosage: 50 MG, UNK
  6. THIORIDAZINE HCL [Concomitant]
     Dosage: UNK UKN, UNK

REACTIONS (3)
  - DYSPNOEA [None]
  - LUNG NEOPLASM MALIGNANT [None]
  - DEPRESSED MOOD [None]
